FAERS Safety Report 4578507-6 (Version None)
Quarter: 2005Q1

REPORT INFORMATION
  Report Type: 
  Country: None (occurrence: None)
  Receive Date: 20050207
  Receipt Date: 20050207
  Transmission Date: 20050727
  Serious: Yes (Hospitalization)
  Sender: FDA-Public Use
  Company Number: None

PATIENT
  Age: 33 Year
  Sex: Female
  Weight: 77.1115 kg

DRUGS (16)
  1. BETHANECHOL [Suspect]
     Indication: BLADDER DISORDER
     Dosage: 50 MG   QID   ORAL
     Route: 048
     Dates: start: 20050121, end: 20050125
  2. BETHANECHOL [Suspect]
     Indication: URINARY RETENTION
     Dosage: 50 MG   QID   ORAL
     Route: 048
     Dates: start: 20050121, end: 20050125
  3. SYNTHROID [Concomitant]
  4. STRATTERA [Concomitant]
  5. SINGULAIR [Concomitant]
  6. DETROL LA [Concomitant]
  7. NASONEX [Concomitant]
  8. IBUPROFEN [Concomitant]
  9. COLACE [Concomitant]
  10. NEXIUM [Concomitant]
  11. KLONOPIN [Concomitant]
  12. BETHANACOL [Concomitant]
  13. BACTRIM [Concomitant]
  14. FUROSEMIDE [Concomitant]
  15. PROCHLORPERAZINE [Concomitant]
  16. PERCOCET [Concomitant]

REACTIONS (8)
  - CHILLS [None]
  - DROOLING [None]
  - DRUG TOXICITY [None]
  - FEELING COLD [None]
  - HYPERHIDROSIS [None]
  - MYDRIASIS [None]
  - RHINORRHOEA [None]
  - TREMOR [None]
